FAERS Safety Report 5027534-3 (Version None)
Quarter: 2006Q2

REPORT INFORMATION
  Report Type: 
  Country: None (occurrence: None)
  Receive Date: 20060616
  Receipt Date: 20060608
  Transmission Date: 20061013
  Serious: Yes (Other)
  Sender: FDA-Public Use
  Company Number: PHNR2006AU00808

PATIENT
  Sex: Female

DRUGS (2)
  1. LAMISIL [Suspect]
     Indication: ONYCHOMYCOSIS
     Dosage: 250 MG, UNK
     Route: 048
  2. LAMISIL [Suspect]
     Dosage: 125 MG, BID
     Route: 048

REACTIONS (3)
  - DYSPEPSIA [None]
  - STOMACH DISCOMFORT [None]
  - VISION BLURRED [None]
